FAERS Safety Report 7999585-8 (Version None)
Quarter: 2011Q4

REPORT INFORMATION
  Report Type: 
  Country: None (occurrence: None)
  Receive Date: 20111221
  Receipt Date: 20111214
  Transmission Date: 20120403
  Serious: Yes (Hospitalization, Disabling, Other)
  Sender: FDA-Public Use
  Company Number: US-MERCK-1108USA02082

PATIENT
  Age: 45 Year
  Sex: Female
  Weight: 75 kg

DRUGS (1)
  1. FOSAMAX [Suspect]
     Indication: OSTEOPOROSIS
     Route: 048
     Dates: end: 20100430

REACTIONS (26)
  - OSTEOPOROSIS [None]
  - MUSCULOSKELETAL DISCOMFORT [None]
  - TIBIA FRACTURE [None]
  - RADICULAR PAIN [None]
  - HYPERTENSION [None]
  - STRESS FRACTURE [None]
  - FEMUR FRACTURE [None]
  - MOBILITY DECREASED [None]
  - JOINT EFFUSION [None]
  - VITAMIN D DEFICIENCY [None]
  - HYPERTHYROIDISM [None]
  - GASTROOESOPHAGEAL REFLUX DISEASE [None]
  - LIMB INJURY [None]
  - CALCIUM DEFICIENCY [None]
  - GINGIVAL DISORDER [None]
  - TOOTH DISORDER [None]
  - THYROID NEOPLASM [None]
  - OSTEOPENIA [None]
  - NEUROPATHY PERIPHERAL [None]
  - FALL [None]
  - LOW TURNOVER OSTEOPATHY [None]
  - OSTEOARTHRITIS [None]
  - GASTRIC DISORDER [None]
  - BARRETT'S OESOPHAGUS [None]
  - BACK PAIN [None]
  - HYPOTENSION [None]
